FAERS Safety Report 7370028-0 (Version None)
Quarter: 2011Q1

REPORT INFORMATION
  Report Type: 
  Country: None (occurrence: None)
  Receive Date: 20110323
  Receipt Date: 20110314
  Transmission Date: 20110831
  Serious: Yes (Hospitalization)
  Sender: FDA-Public Use
  Company Number: US-ASTRAZENECA-2011SE09195

PATIENT
  Age: 77 Year
  Sex: Male
  Weight: 68 kg

DRUGS (4)
  1. TEMAZEPAM [Concomitant]
     Indication: SLEEP DISORDER
  2. SEROQUEL XR [Suspect]
     Indication: PANIC ATTACK
     Route: 048
     Dates: start: 20110201
  3. MORPHINE MSIR [Concomitant]
  4. ANTIDEPRESSANT [Concomitant]

REACTIONS (2)
  - DRUG DOSE OMISSION [None]
  - PANIC ATTACK [None]
